FAERS Safety Report 25604003 (Version 2)
Quarter: 2025Q3

REPORT INFORMATION
  Report Type: Spontaneous
  Country: EU (occurrence: EU)
  Receive Date: 20250725
  Receipt Date: 20250812
  Transmission Date: 20251020
  Serious: Yes (Other)
  Sender: NOVO NORDISK
  Company Number: None

PATIENT
  Age: 49 Year
  Sex: Female
  Weight: 85 kg

DRUGS (4)
  1. WEGOVY [Suspect]
     Active Substance: SEMAGLUTIDE
     Indication: Overweight
     Dosage: 1 MG, QW
     Dates: start: 20250227, end: 20250501
  2. CANDEMOX [CANDESARTAN CILEXETIL] [Concomitant]
     Indication: Hypertension
     Dosage: 8 MG, QD
     Route: 048
     Dates: start: 202412, end: 202506
  3. PANTOPRAZOLE SODIUM [Concomitant]
     Active Substance: PANTOPRAZOLE SODIUM
     Indication: Gastrooesophageal reflux disease
     Dosage: 40 MG, QD
     Route: 048
     Dates: start: 20240530
  4. ASPIRIN [Concomitant]
     Active Substance: ASPIRIN
     Indication: Neoplasm prophylaxis
     Dosage: 100 MG, QD
     Route: 048
     Dates: start: 20220912

REACTIONS (4)
  - Cardiac failure [Unknown]
  - Heart rate irregular [Recovering/Resolving]
  - Extrasystoles [Recovering/Resolving]
  - Fatigue [Recovered/Resolved]

NARRATIVE: CASE EVENT DATE: 20250101
